FAERS Safety Report 4975111-2 (Version None)
Quarter: 2006Q2

REPORT INFORMATION
  Report Type: 
  Country: None (occurrence: None)
  Receive Date: 20060411
  Receipt Date: 20060323
  Transmission Date: 20061013
  Serious: Yes (Death, Other)
  Sender: FDA-Public Use
  Company Number: DEU-2005-0001498

PATIENT
  Age: 38 Year
  Sex: Male
  Weight: 77 kg

DRUGS (3)
  1. MORPHINE SULFATE [Suspect]
     Indication: DRUG WITHDRAWAL MAINTENANCE THERAPY
     Dosage: SEE IMAGE
     Route: 048
  2. CANABIS (CANNABIS) [Concomitant]
  3. METHADONE HCL [Concomitant]

REACTIONS (8)
  - ASTHMA [None]
  - BRONCHOPNEUMONIA [None]
  - CEREBRAL DISORDER [None]
  - DRUG TOXICITY [None]
  - INJURY ASPHYXIATION [None]
  - PARESIS [None]
  - PNEUMONIA ASPIRATION [None]
  - VOMITING [None]
